FAERS Safety Report 17347381 (Version 1)
Quarter: 2020Q1

REPORT INFORMATION
  Report Type: Spontaneous
  Country: PL (occurrence: PL)
  Receive Date: 20200129
  Receipt Date: 20200129
  Transmission Date: 20200409
  Serious: No
  Sender: FDA-Public Use
  Company Number: PL-EXELIXIS-CABO-19022409

PATIENT
  Age: 48 Year
  Sex: Male

DRUGS (1)
  1. CABOMETYX [Suspect]
     Active Substance: CABOZANTINIB S-MALATE
     Indication: RENAL CANCER
     Dosage: 60 MG, QD
     Dates: start: 201810

REACTIONS (6)
  - Myalgia [Unknown]
  - Blood count abnormal [Unknown]
  - Blood pressure increased [Recovered/Resolved]
  - Headache [Unknown]
  - Blood thyroid stimulating hormone increased [Unknown]
  - Tachycardia [Unknown]

NARRATIVE: CASE EVENT DATE: 201812
